FAERS Safety Report 15849713 (Version 3)
Quarter: 2021Q1

REPORT INFORMATION
  Report Type: Report from Study
  Country: US (occurrence: US)
  Receive Date: 20190121
  Receipt Date: 20210329
  Transmission Date: 20210419
  Serious: Yes (Hospitalization)
  Sender: FDA-Public Use
  Company Number: US-MYLANLABS-2019M1003957

PATIENT
  Age: 28 Year
  Sex: Male
  Weight: 81.5 kg

DRUGS (147)
  1. TOBI PODHALER [Suspect]
     Active Substance: TOBRAMYCIN
     Dosage: 4 CAPSULES
     Dates: start: 20160630, end: 20160727
  2. TOBI PODHALER [Suspect]
     Active Substance: TOBRAMYCIN
     Dosage: 112 MILLIGRAM, BID
     Dates: start: 20170414, end: 20170512
  3. TOBI PODHALER [Suspect]
     Active Substance: TOBRAMYCIN
     Dosage: 112 MILLIGRAM, BID
     Dates: start: 20180101, end: 20180129
  4. TOBI PODHALER [Suspect]
     Active Substance: TOBRAMYCIN
     Dosage: 112 MILLIGRAM, BID
     Dates: start: 20181115, end: 20181213
  5. TOBI PODHALER [Suspect]
     Active Substance: TOBRAMYCIN
     Dosage: 112 MILLIGRAM, BID
     Dates: start: 20190627, end: 20190725
  6. TOBI PODHALER [Suspect]
     Active Substance: TOBRAMYCIN
     Dosage: 112 MILLIGRAM, BID
     Dates: start: 20191212, end: 20200109
  7. TOBI PODHALER [Suspect]
     Active Substance: TOBRAMYCIN
     Dosage: 112 MILLIGRAM, BID
     Dates: start: 20200723, end: 20200820
  8. MEROPENEM. [Concomitant]
     Active Substance: MEROPENEM
     Dosage: 2000 MILLIGRAM
     Route: 042
     Dates: start: 20181231, end: 20190110
  9. MEROPENEM. [Concomitant]
     Active Substance: MEROPENEM
     Dosage: 2 GRAM
     Route: 042
     Dates: start: 20180830, end: 20180913
  10. AZITHROMYCIN ANHYDROUS. [Concomitant]
     Active Substance: AZITHROMYCIN ANHYDROUS
     Dosage: 250 MILLIGRAM, 3XW
     Route: 048
     Dates: start: 20181003, end: 20181213
  11. ALLEGRA [Concomitant]
     Active Substance: FEXOFENADINE HYDROCHLORIDE
     Indication: SEASONAL ALLERGY
     Dosage: 180 MILLIGRAM, QD
     Route: 048
     Dates: start: 20140217
  12. SODIUM CHLORIDE. [Concomitant]
     Active Substance: SODIUM CHLORIDE
     Indication: INFECTIVE PULMONARY EXACERBATION OF CYSTIC FIBROSIS
     Dosage: 10 MILLILITRE, WEEKLY
     Route: 042
     Dates: start: 20181228
  13. FLUTICASONE W/SALMETEROL [Concomitant]
     Active Substance: FLUTICASONE PROPIONATE\SALMETEROL XINAFOATE
     Indication: ASTHMA
     Dosage: 500/50 MICROGRAM, BID
     Dates: start: 20201223, end: 20210218
  14. PREDNISONE. [Concomitant]
     Active Substance: PREDNISONE
     Dosage: 10 MILLIGRAM, QD
     Route: 048
     Dates: start: 20200908, end: 20200912
  15. XARELTO [Concomitant]
     Active Substance: RIVAROXABAN
     Dosage: 10 MILLIGRAM, QD
     Route: 048
     Dates: start: 20190328, end: 20190408
  16. XARELTO [Concomitant]
     Active Substance: RIVAROXABAN
     Dosage: 10 MILLIGRAM, QD
     Route: 048
     Dates: start: 20170216, end: 20170302
  17. COLISTIN [Concomitant]
     Active Substance: COLISTIN
     Indication: INFECTIVE PULMONARY EXACERBATION OF CYSTIC FIBROSIS
     Dosage: 70 MILLIGRAM, TID
     Route: 042
     Dates: start: 20191017, end: 20191023
  18. DEXAMETHASONE. [Concomitant]
     Active Substance: DEXAMETHASONE
     Indication: NAUSEA
  19. TYLENOL [Concomitant]
     Active Substance: ACETAMINOPHEN
     Dosage: 650 MILLIGRAM
     Route: 048
     Dates: start: 20190401, end: 20190401
  20. DOXYCYCLINE. [Concomitant]
     Active Substance: DOXYCYCLINE
     Dosage: 100 MILLIGRAM, BID
     Route: 048
     Dates: start: 20181127, end: 20181213
  21. VANCOMYCIN [Concomitant]
     Active Substance: VANCOMYCIN
     Dosage: 2000 MILLIGRAM, QD
     Route: 042
     Dates: start: 20171028, end: 20171028
  22. LINEZOLID. [Concomitant]
     Active Substance: LINEZOLID
     Dosage: 600 MILLIGRAM, BID
     Route: 048
     Dates: start: 20180723, end: 20180913
  23. MELATONIN [Concomitant]
     Active Substance: MELATONIN
     Indication: INSOMNIA
     Dosage: 3 MILLIGRAM, QD AT BEDTIME
     Route: 048
     Dates: start: 20171027, end: 20171031
  24. TOBI PODHALER [Suspect]
     Active Substance: TOBRAMYCIN
     Dosage: 4 CAPSULES
     Dates: start: 20160504, end: 20160601
  25. TOBI PODHALER [Suspect]
     Active Substance: TOBRAMYCIN
     Dosage: 112 MILLIGRAM, BID
     Dates: start: 20190502, end: 20190530
  26. TOBI PODHALER [Suspect]
     Active Substance: TOBRAMYCIN
     Dosage: 112 MILLIGRAM, BID
     Dates: start: 20200402, end: 20200430
  27. TOBI PODHALER [Suspect]
     Active Substance: TOBRAMYCIN
     Dosage: 112 MILLIGRAM, BID
     Dates: start: 20200917, end: 20201015
  28. SYMDES [Concomitant]
     Indication: CYSTIC FIBROSIS LUNG
     Dosage: 100?150 + 150 MG AM + PM
     Route: 048
     Dates: start: 20180405
  29. CEFDINIR. [Concomitant]
     Active Substance: CEFDINIR
     Dosage: 300 MILLIGRAM, BID
     Route: 048
     Dates: start: 20190319, end: 20190325
  30. SODIUM CHLORIDE. [Concomitant]
     Active Substance: SODIUM CHLORIDE
     Dosage: 20 MILLILITER, QW
     Route: 042
     Dates: start: 20190809, end: 20190822
  31. ENOXAPARIN [Concomitant]
     Active Substance: ENOXAPARIN
     Dosage: 40 MILLIGRAM, QD
     Route: 058
     Dates: start: 20210313
  32. PREDNISONE. [Concomitant]
     Active Substance: PREDNISONE
     Indication: FATIGUE
     Dosage: 30 MILLIGRAM, QD
     Route: 048
     Dates: start: 20200829, end: 20200902
  33. PREDNISONE. [Concomitant]
     Active Substance: PREDNISONE
     Dosage: 30 MILLIGRAM, QD
     Route: 048
     Dates: start: 20200331, end: 20200404
  34. ALEVE [Concomitant]
     Active Substance: NAPROXEN SODIUM
     Indication: CHEST PAIN
     Dosage: 440 MILLIGRAM, BID
     Route: 048
     Dates: start: 20200611
  35. PROPOFOL. [Concomitant]
     Active Substance: PROPOFOL
     Indication: GENERAL ANAESTHESIA
     Dosage: 250 MILLIGRAM, QD
     Route: 042
     Dates: start: 20190705, end: 20190705
  36. ROCURONIUM [Concomitant]
     Active Substance: ROCURONIUM BROMIDE
     Dosage: 50 MILLIGRAM, QD
     Route: 042
     Dates: start: 20190705, end: 20190705
  37. COLYMYCIN                          /00013206/ [Concomitant]
     Dosage: 75 MILLIGRAM
     Route: 042
     Dates: start: 20190325, end: 20190408
  38. LINEZOLID. [Concomitant]
     Active Substance: LINEZOLID
     Dosage: 1200 MILLIGRAM, BID
     Route: 048
     Dates: start: 20171030, end: 20171031
  39. BACTRIM DS [Concomitant]
     Active Substance: SULFAMETHOXAZOLE\TRIMETHOPRIM
     Dosage: 800/160 MILLIGRAM, BID
     Route: 048
     Dates: start: 20180720, end: 20180723
  40. SEPTRA DS [Concomitant]
     Active Substance: SULFAMETHOXAZOLE\TRIMETHOPRIM
     Dosage: 160 MILLIGRAM, BID
     Route: 048
     Dates: start: 20161215, end: 20161222
  41. TOBI PODHALER [Suspect]
     Active Substance: TOBRAMYCIN
     Dosage: INHALE 4 CAPSULES 2 TIMES A DAY, CYCLING 28 AND 28 D OFF
     Dates: start: 20160309, end: 20160405
  42. TOBI PODHALER [Suspect]
     Active Substance: TOBRAMYCIN
     Dosage: 112 MILLIGRAM, BID, 4 CAPSULES
     Dates: start: 20170217, end: 20170317
  43. TOBI PODHALER [Suspect]
     Active Substance: TOBRAMYCIN
     Dosage: 112 MILLIGRAM, BID
     Dates: start: 20190822, end: 20190919
  44. TOBI PODHALER [Suspect]
     Active Substance: TOBRAMYCIN
     Dosage: 112 MILLIGRAM, BID
     Dates: start: 20201112, end: 20201210
  45. MEROPENEM. [Concomitant]
     Active Substance: MEROPENEM
     Indication: INFECTIVE PULMONARY EXACERBATION OF CYSTIC FIBROSIS
     Dosage: 2000 MILLIGRAM, QID
     Route: 042
     Dates: start: 20181228
  46. CREON [Concomitant]
     Active Substance: PANCRELIPASE AMYLASE\PANCRELIPASE LIPASE\PANCRELIPASE PROTEASE
     Indication: PANCREATIC FAILURE
     Dosage: 7 DOSAGE FORM, QD
     Dates: start: 20091124
  47. ALBUTEROL                          /00139501/ [Concomitant]
     Active Substance: ALBUTEROL
     Indication: DYSPNOEA
     Dosage: 2 PUFFS PRO
     Dates: start: 19910425
  48. PRILOSEC [Concomitant]
     Active Substance: OMEPRAZOLE MAGNESIUM
     Dosage: 40 MILLIGRAM, QD
     Route: 048
     Dates: start: 20011109
  49. AQUADEKS                           /07679501/ [Concomitant]
     Active Substance: MINERALS\VITAMINS
     Indication: PANCREATIC FAILURE
     Dosage: 2 DOSAGE FORM
     Route: 048
     Dates: start: 20010531
  50. CEFDINIR. [Concomitant]
     Active Substance: CEFDINIR
     Dosage: 300 MILLIGRAM, BID
     Route: 048
     Dates: start: 20181217, end: 20181228
  51. TOBRAMYCIN. [Concomitant]
     Active Substance: TOBRAMYCIN
     Dosage: 800 MILLIGRAM, QD
     Route: 042
     Dates: start: 20170217, end: 20170221
  52. SODIUM CHLORIDE. [Concomitant]
     Active Substance: SODIUM CHLORIDE
     Dosage: 100 MILLILITER
     Route: 042
     Dates: start: 20171027, end: 20171028
  53. OMNICEF                            /00497602/ [Concomitant]
     Active Substance: CEFOTAXIME SODIUM
     Indication: ANTIBIOTIC THERAPY
     Dosage: 300 MILLIGRAM, BID
     Route: 048
     Dates: start: 20210308
  54. PREDNISONE. [Concomitant]
     Active Substance: PREDNISONE
     Dosage: 10 MILLIGRAM, QD
     Route: 048
     Dates: start: 20200602, end: 20200608
  55. XARELTO [Concomitant]
     Active Substance: RIVAROXABAN
     Dosage: 100 MILLIGRAM, Q8H
     Route: 048
     Dates: start: 20170727, end: 20170806
  56. LOVENOX [Concomitant]
     Active Substance: ENOXAPARIN SODIUM
     Indication: ANTICOAGULANT THERAPY
     Dosage: 40 MILLIGRAM, QD
     Route: 048
     Dates: start: 20191016, end: 20191021
  57. ONDANSETRON [Concomitant]
     Active Substance: ONDANSETRON
     Indication: VOMITING
     Dosage: 4 MILLIGRAM, Q4D
     Route: 042
     Dates: start: 20171027, end: 20171031
  58. GLYCOPYRROLATE                     /00196202/ [Concomitant]
     Active Substance: GLYCOPYRROLATE
     Dosage: 0.6 MILLIGRAM, QD
     Route: 042
     Dates: start: 20190705, end: 20190705
  59. DOXYCYCLINE. [Concomitant]
     Active Substance: DOXYCYCLINE
     Dosage: 100 MILLIGRAM, BID
     Route: 048
     Dates: start: 20170421, end: 20170501
  60. FLAGYL [Concomitant]
     Active Substance: METRONIDAZOLE\METRONIDAZOLE HYDROCHLORIDE
     Dosage: 500 MILLIGRAM, TID
     Route: 048
     Dates: start: 20181108, end: 20181115
  61. BACTRIM DS [Concomitant]
     Active Substance: SULFAMETHOXAZOLE\TRIMETHOPRIM
     Dosage: 1600 MILLIGRAM, BID
     Route: 048
     Dates: start: 20170621, end: 20170711
  62. CEFEPIME [Concomitant]
     Active Substance: CEFEPIME HYDROCHLORIDE
     Dosage: 2 GRAM, Q8H
     Route: 042
     Dates: start: 20180514, end: 20180523
  63. TOBI PODHALER [Suspect]
     Active Substance: TOBRAMYCIN
     Indication: PRODUCT USED FOR UNKNOWN INDICATION
     Dosage: 112 MILLIGRAM, 9 MONTH
     Route: 050
     Dates: start: 20181115
  64. TOBI PODHALER [Suspect]
     Active Substance: TOBRAMYCIN
     Dosage: 112 MILLIGRAM, BID
     Route: 050
     Dates: start: 20160309, end: 20210305
  65. TOBI PODHALER [Suspect]
     Active Substance: TOBRAMYCIN
     Dosage: 112 MILLIGRAM, BID
     Dates: start: 20180301, end: 20180328
  66. TOBI PODHALER [Suspect]
     Active Substance: TOBRAMYCIN
     Dosage: 112 MILLIGRAM, BID
     Dates: start: 20180920, end: 20181018
  67. TOBI PODHALER [Suspect]
     Active Substance: TOBRAMYCIN
     Dosage: 112 MILLIGRAM, BID
     Dates: start: 20170109, end: 20170707
  68. TOBI PODHALER [Suspect]
     Active Substance: TOBRAMYCIN
     Dosage: 112 MILLIGRAM, BID
     Dates: start: 20210305
  69. MEROPENEM. [Concomitant]
     Active Substance: MEROPENEM
     Dosage: 2000 MILLIGRAM
     Route: 042
     Dates: start: 20190809, end: 20190826
  70. MEROPENEM. [Concomitant]
     Active Substance: MEROPENEM
     Dosage: 2000 MILLIGRAM
     Route: 042
     Dates: start: 20190325, end: 20190408
  71. AZITHROMYCIN ANHYDROUS. [Concomitant]
     Active Substance: AZITHROMYCIN ANHYDROUS
     Indication: CYSTIC FIBROSIS LUNG
     Dosage: 250 MILLIGRAM, QD
     Route: 048
     Dates: start: 20030828
  72. PREDNISONE. [Concomitant]
     Active Substance: PREDNISONE
     Indication: NAUSEA
     Dosage: 40 MILLIGRAM, QD
     Route: 048
     Dates: start: 20200824, end: 20200828
  73. XARELTO [Concomitant]
     Active Substance: RIVAROXABAN
     Dosage: 10 MILLIGRAM, QD
     Route: 048
     Dates: start: 20180514, end: 20180524
  74. FENTANYL. [Concomitant]
     Active Substance: FENTANYL
     Dosage: 200 MICROGRAM, QD
     Route: 042
     Dates: start: 20190705, end: 20190705
  75. HEPARIN [Concomitant]
     Active Substance: HEPARIN SODIUM
     Indication: ANTICOAGULANT THERAPY
     Dosage: 100 MILLILITER, PRN
     Route: 042
     Dates: start: 20190809, end: 20190822
  76. LIDOCAINE. [Concomitant]
     Active Substance: LIDOCAINE
     Dosage: 100 MILLIGRAM, QD
     Route: 042
     Dates: start: 20190705, end: 20190705
  77. DEXTROSE. [Concomitant]
     Active Substance: DEXTROSE
     Dosage: 50 MILLILITER, PRN
     Route: 042
     Dates: start: 20190325, end: 20190328
  78. BACTRIM DS [Concomitant]
     Active Substance: SULFAMETHOXAZOLE\TRIMETHOPRIM
     Dosage: 800 MILLIGRAM, BID
     Route: 048
     Dates: start: 20180430, end: 20180510
  79. AMINOPHYLLINE. [Concomitant]
     Active Substance: AMINOPHYLLINE
     Indication: DYSPNOEA
     Dosage: 125 MILLIGRAM, QD
     Route: 042
     Dates: start: 20171031, end: 20171031
  80. TOBI PODHALER [Suspect]
     Active Substance: TOBRAMYCIN
     Dosage: 112 MILLIGRAM, BID
     Dates: start: 20210107, end: 20210204
  81. TOBI PODHALER [Suspect]
     Active Substance: TOBRAMYCIN
     Dosage: 4 CAPSULES
     Dates: start: 20161223, end: 20170120
  82. TOBI PODHALER [Suspect]
     Active Substance: TOBRAMYCIN
     Dosage: 112 MILLIGRAM, BID
     Dates: start: 20171006, end: 20171027
  83. TOBI PODHALER [Suspect]
     Active Substance: TOBRAMYCIN
     Dosage: 112 MILLIGRAM, BID
     Dates: start: 20180726, end: 20180823
  84. TOBI PODHALER [Suspect]
     Active Substance: TOBRAMYCIN
     Dosage: 112 MILLIGRAM, BID
     Dates: start: 20190110, end: 20190207
  85. TOBI PODHALER [Suspect]
     Active Substance: TOBRAMYCIN
     Dosage: 112 MILLIGRAM, BID
     Dates: start: 20200206, end: 20200305
  86. CEFDINIR. [Concomitant]
     Active Substance: CEFDINIR
     Indication: INFECTIVE PULMONARY EXACERBATION OF CYSTIC FIBROSIS
     Dosage: 300 MILLIGRAM, BID
     Route: 048
     Dates: start: 20181217, end: 20181228
  87. TOBRAMYCIN. [Concomitant]
     Active Substance: TOBRAMYCIN
     Dosage: 800 MILLIGRAM, QD
     Route: 042
     Dates: start: 20170217, end: 20170221
  88. TOBRAMYCIN. [Concomitant]
     Active Substance: TOBRAMYCIN
     Dosage: 730 MILLIGRAM, QD
     Route: 042
     Dates: start: 20170221, end: 20170302
  89. ENOXAPARIN [Concomitant]
     Active Substance: ENOXAPARIN
     Indication: INFECTIVE PULMONARY EXACERBATION OF CYSTIC FIBROSIS
     Dosage: 40 MILLIGRAM, QID
     Route: 058
     Dates: start: 20181228
  90. FLUTICASONE W/SALMETEROL [Concomitant]
     Active Substance: FLUTICASONE PROPIONATE\SALMETEROL XINAFOATE
     Indication: ASTHMA
     Dosage: 1 PUFF
     Dates: start: 20201210
  91. PREDNISONE. [Concomitant]
     Active Substance: PREDNISONE
     Indication: CHEST PAIN
     Dosage: 20 MILLIGRAM, QD
     Route: 048
     Dates: start: 20200903, end: 20200907
  92. XARELTO [Concomitant]
     Active Substance: RIVAROXABAN
     Dosage: 10 MILLIGRAM, QD
     Route: 048
     Dates: start: 20190329, end: 20190602
  93. XARELTO [Concomitant]
     Active Substance: RIVAROXABAN
     Dosage: 10 MILLIGRAM, QD
     Route: 048
     Dates: start: 20181231, end: 20190110
  94. ONDANSETRON [Concomitant]
     Active Substance: ONDANSETRON
     Indication: NAUSEA
     Dosage: 4 MILLIGRAM, QD
     Route: 042
     Dates: start: 20190705, end: 20190705
  95. DOXYCYCLINE. [Concomitant]
     Active Substance: DOXYCYCLINE
     Dosage: 100 MILLIGRAM, BID
     Route: 048
     Dates: start: 20180726, end: 20180809
  96. BACTRIM DS [Concomitant]
     Active Substance: SULFAMETHOXAZOLE\TRIMETHOPRIM
     Dosage: 800 MILLIGRAM, BID
     Route: 048
     Dates: start: 20170215, end: 20170301
  97. SEPTRA DS [Concomitant]
     Active Substance: SULFAMETHOXAZOLE\TRIMETHOPRIM
     Dosage: 320 MILLIGRAM, BID
     Route: 048
     Dates: start: 20170627, end: 20170711
  98. SEPTRA DS [Concomitant]
     Active Substance: SULFAMETHOXAZOLE\TRIMETHOPRIM
     Dosage: 160 MILLIGRAM, BID
     Route: 048
     Dates: start: 20161020, end: 20161108
  99. VITAMIN D3 [Concomitant]
     Active Substance: CHOLECALCIFEROL
     Indication: VITAMIN D DEFICIENCY
     Dosage: 4000 INTERNATIONAL UNIT, QD
     Dates: start: 20170627
  100. TOBI PODHALER [Suspect]
     Active Substance: TOBRAMYCIN
     Dosage: 112 MILLIGRAM, BID
     Dates: start: 20170804, end: 20170901
  101. TOBI PODHALER [Suspect]
     Active Substance: TOBRAMYCIN
     Dosage: 112 MILLIGRAM, BID
     Dates: start: 20171101, end: 20171129
  102. TOBI PODHALER [Suspect]
     Active Substance: TOBRAMYCIN
     Dosage: 112 MILLIGRAM, BID
     Dates: start: 20180514, end: 20180610
  103. TOBI PODHALER [Suspect]
     Active Substance: TOBRAMYCIN
     Dosage: 112 MILLIGRAM, BID
     Dates: start: 20190307, end: 20190404
  104. MEROPENEM. [Concomitant]
     Active Substance: MEROPENEM
     Dosage: 2 GRAM, Q8H
     Route: 042
     Dates: start: 20170216, end: 20170302
  105. PULMOZYME [Concomitant]
     Active Substance: DORNASE ALFA
     Indication: CYSTIC FIBROSIS LUNG
     Dosage: 1 MILLIGRAM, QD
     Dates: start: 19970108
  106. CEFDINIR. [Concomitant]
     Active Substance: CEFDINIR
     Dosage: 300 MILLIGRAM, BID
     Route: 048
     Dates: start: 20210213, end: 20210223
  107. TOBRAMYCIN. [Concomitant]
     Active Substance: TOBRAMYCIN
     Dosage: 760 MILLIGRAM, QD
     Route: 042
     Dates: start: 20171031, end: 20171108
  108. TOBRAMYCIN. [Concomitant]
     Active Substance: TOBRAMYCIN
     Dosage: 730 MILLIGRAM, QD
     Route: 042
     Dates: start: 20170728, end: 20170810
  109. PROVENTIL [Concomitant]
     Active Substance: ALBUTEROL
     Indication: ASTHMA
     Dosage: 108 MICROGRAM
     Dates: start: 20201210
  110. PREDNISONE. [Concomitant]
     Active Substance: PREDNISONE
     Dosage: 40 MILLIGRAM, QD
     Route: 048
     Dates: start: 20200320, end: 20200330
  111. PREDNISONE. [Concomitant]
     Active Substance: PREDNISONE
     Dosage: 20 MILLIGRAM, QD
     Route: 048
     Dates: start: 20200320, end: 20200601
  112. XARELTO [Concomitant]
     Active Substance: RIVAROXABAN
     Indication: ANTICOAGULANT THERAPY
     Dosage: 10 MILLIGRAM, QD
     Route: 048
     Dates: start: 20200615, end: 20200629
  113. XARELTO [Concomitant]
     Active Substance: RIVAROXABAN
     Dosage: 10 MILLIGRAM, QD
     Route: 048
     Dates: start: 20191021, end: 20191027
  114. XARELTO [Concomitant]
     Active Substance: RIVAROXABAN
     Dosage: 10 MILLIGRAM, QD
     Route: 048
     Dates: start: 20190809, end: 20190822
  115. LOVENOX [Concomitant]
     Active Substance: ENOXAPARIN SODIUM
     Dosage: 40 MILLIGRAM, QD
     Route: 058
     Dates: start: 20190325, end: 20190328
  116. VANCOMYCIN [Concomitant]
     Active Substance: VANCOMYCIN
     Dosage: 1750 MILLIGRAM, Q8H
     Route: 042
     Dates: start: 20171029, end: 20171030
  117. BACTRIM DS [Concomitant]
     Active Substance: SULFAMETHOXAZOLE\TRIMETHOPRIM
     Dosage: 800 MILLIGRAM, BID
     Route: 048
     Dates: start: 20161020, end: 20161108
  118. BACTRIM DS [Concomitant]
     Active Substance: SULFAMETHOXAZOLE\TRIMETHOPRIM
     Dosage: 800 MILLIGRAM, BID
     Route: 048
     Dates: start: 20161215, end: 20161222
  119. CEFEPIME [Concomitant]
     Active Substance: CEFEPIME HYDROCHLORIDE
     Dosage: 2000 MILLIGRAM, Q8H
     Route: 042
     Dates: start: 20171029, end: 20171031
  120. SEPTRA DS [Concomitant]
     Active Substance: SULFAMETHOXAZOLE\TRIMETHOPRIM
     Dosage: 160 MILLIGRAM, BID
     Route: 048
     Dates: start: 20170215, end: 20170301
  121. TOBI PODHALER [Suspect]
     Active Substance: TOBRAMYCIN
     Dosage: 112 MILLIGRAM, BID
     Dates: start: 20191017, end: 20191114
  122. TOBI PODHALER [Suspect]
     Active Substance: TOBRAMYCIN
     Dosage: 112 MILLIGRAM, BID
     Dates: start: 20210107, end: 20210204
  123. MEROPENEM. [Concomitant]
     Active Substance: MEROPENEM
     Dosage: 2 GRAM, Q8H
     Route: 042
     Dates: start: 20170728, end: 20170810
  124. AZITHROMYCIN ANHYDROUS. [Concomitant]
     Active Substance: AZITHROMYCIN ANHYDROUS
     Dosage: 250 MILLIGRAM, QD
     Route: 048
     Dates: start: 20201110, end: 20201115
  125. CEFDINIR. [Concomitant]
     Active Substance: CEFDINIR
     Dosage: 300 MILLIGRAM, BID
     Route: 048
     Dates: start: 20201103, end: 20201114
  126. CEFDINIR. [Concomitant]
     Active Substance: CEFDINIR
     Dosage: 300 MILLIGRAM, BID
     Route: 048
     Dates: start: 20190708, end: 20190727
  127. TOBRAMYCIN. [Concomitant]
     Active Substance: TOBRAMYCIN
     Indication: INFECTIVE PULMONARY EXACERBATION OF CYSTIC FIBROSIS
     Dosage: 760 MILLIGRAM, QD
     Route: 042
     Dates: start: 20181228
  128. TOBRAMYCIN. [Concomitant]
     Active Substance: TOBRAMYCIN
     Dosage: 760 MILLIGRAM, QD
     Route: 042
     Dates: start: 20181228, end: 20190108
  129. TOBRAMYCIN. [Concomitant]
     Active Substance: TOBRAMYCIN
     Dosage: 760 MILLIGRAM, QD
     Route: 042
     Dates: start: 20171029, end: 20171030
  130. PREDNISONE. [Concomitant]
     Active Substance: PREDNISONE
     Dosage: 10 MILLIGRAM, QD
     Route: 048
     Dates: start: 20200410, end: 20200414
  131. LOVENOX [Concomitant]
     Active Substance: ENOXAPARIN SODIUM
     Dosage: 40 MILLIGRAM, QD
     Route: 058
     Dates: start: 20171028, end: 20171031
  132. TAMIFLU [Concomitant]
     Active Substance: OSELTAMIVIR PHOSPHATE
     Dosage: 75 MILLIGRAM, BID
     Route: 048
     Dates: start: 20190401, end: 20190405
  133. TYLENOL [Concomitant]
     Active Substance: ACETAMINOPHEN
     Dosage: 650 MILLIGRAM
     Route: 048
     Dates: start: 20190325, end: 20190328
  134. GLUCOGEN [Concomitant]
     Dosage: 1 MILLIGRAM, PRN
     Route: 042
     Dates: start: 20190325, end: 20190328
  135. VANCOMYCIN [Concomitant]
     Active Substance: VANCOMYCIN
     Dosage: 125 MILLIGRAM, Q6H
     Route: 048
     Dates: start: 20181115, end: 20181125
  136. BACTRIM DS [Concomitant]
     Active Substance: SULFAMETHOXAZOLE\TRIMETHOPRIM
     Dosage: 1600 MILLIGRAM, BID
     Route: 048
     Dates: start: 20171027, end: 20171027
  137. TOBI PODHALER [Suspect]
     Active Substance: TOBRAMYCIN
     Dosage: 112 MILLIGRAM, BID
     Dates: start: 20160825, end: 20160922
  138. TOBI PODHALER [Suspect]
     Active Substance: TOBRAMYCIN
     Dosage: 4 CAPSULES
     Dates: start: 20161021, end: 20161118
  139. TOBI PODHALER [Suspect]
     Active Substance: TOBRAMYCIN
     Dosage: 112 MILLIGRAM, BID
     Dates: start: 20200528, end: 20200625
  140. AZITHROMYCIN ANHYDROUS. [Concomitant]
     Active Substance: AZITHROMYCIN ANHYDROUS
     Dosage: 250 MILLIGRAM, QD
     Dates: start: 20201201, end: 20201231
  141. ALLEGRA [Concomitant]
     Active Substance: FEXOFENADINE HYDROCHLORIDE
     Dosage: 180 MILLIGRAM, QD
     Route: 048
     Dates: start: 20190515, end: 20191114
  142. PREDNISONE. [Concomitant]
     Active Substance: PREDNISONE
     Dosage: 20 MILLIGRAM, QD
     Route: 048
     Dates: start: 20200405, end: 20200407
  143. COLISTIN [Concomitant]
     Active Substance: COLISTIN
     Dosage: 75 MILLIGRAM, TID
     Route: 042
     Dates: start: 20191016, end: 20191016
  144. FENTANYL. [Concomitant]
     Active Substance: FENTANYL
     Indication: ABDOMINAL PAIN
     Dosage: 50 MICROGRAM, PRN
     Route: 042
     Dates: start: 20191016, end: 20191021
  145. DEXAMETHASONE. [Concomitant]
     Active Substance: DEXAMETHASONE
     Indication: VOMITING
     Dosage: 10 MILLIGRAM, QD
     Route: 042
     Dates: start: 20190705, end: 20190705
  146. DOXYCYCLINE. [Concomitant]
     Active Substance: DOXYCYCLINE
     Dosage: 100 MILLIGRAM, BID
     Route: 048
     Dates: start: 20190121, end: 20190123
  147. CEFEPIME [Concomitant]
     Active Substance: CEFEPIME HYDROCHLORIDE
     Dosage: 2000 MILLIGRAM, QD
     Route: 042
     Dates: start: 20171027, end: 20171027

REACTIONS (1)
  - Infective pulmonary exacerbation of cystic fibrosis [Recovered/Resolved]

NARRATIVE: CASE EVENT DATE: 20181228
